FAERS Safety Report 5321393-7 (Version None)
Quarter: 2007Q2

REPORT INFORMATION
  Report Type: 
  Country: None (occurrence: None)
  Receive Date: 20070504
  Receipt Date: 20070425
  Transmission Date: 20071010
  Serious: Yes (Hospitalization)
  Sender: FDA-Public Use
  Company Number: RENA-12183

PATIENT
  Age: 65 Year
  Sex: Female

DRUGS (1)
  1. RENAGEL [Suspect]
     Indication: HYPERPHOSPHATAEMIA

REACTIONS (4)
  - ABDOMINAL PAIN UPPER [None]
  - INJURY [None]
  - MUSCULOSKELETAL DISORDER [None]
  - THERAPEUTIC AGENT TOXICITY [None]
